FAERS Safety Report 23096500 (Version 1)
Quarter: 2023Q4

REPORT INFORMATION
  Report Type: Spontaneous
  Country: US (occurrence: US)
  Receive Date: 20231023
  Receipt Date: 20231023
  Transmission Date: 20240110
  Serious: No
  Sender: FDA-Public Use
  Company Number: US-PFIZER INC-202300332569

PATIENT
  Age: 71 Year
  Sex: Female
  Weight: 58.06 kg

DRUGS (1)
  1. IBRANCE [Suspect]
     Active Substance: PALBOCICLIB
     Indication: Neoplasm malignant
     Dosage: 125 MG, CYCLIC (EVERY DAY FOR 21 DAYS AND  7 DAYS OFF))
     Route: 048

REACTIONS (8)
  - Skin irritation [Recovering/Resolving]
  - Skin burning sensation [Recovering/Resolving]
  - Skin abrasion [Unknown]
  - Wound haemorrhage [Unknown]
  - Scab [Unknown]
  - Fatigue [Unknown]
  - Pruritus [Unknown]
  - Visual impairment [Unknown]
